FAERS Safety Report 10869111 (Version 2)
Quarter: 2016Q3

REPORT INFORMATION
  Report Type: Report from Study
  Country: PL (occurrence: PL)
  Receive Date: 20150225
  Receipt Date: 20160706
  Transmission Date: 20161109
  Serious: Yes (Hospitalization)
  Sender: FDA-Public Use
  Company Number: PL-GILEAD-2015-0132654

PATIENT
  Age: 71 Year
  Sex: Female
  Weight: 65 kg

DRUGS (30)
  1. BENDAMUSTINE [Suspect]
     Active Substance: BENDAMUSTINE
     Route: 042
     Dates: start: 20141104, end: 20141104
  2. ACARD [Concomitant]
     Active Substance: ASPIRIN
     Route: 048
     Dates: start: 20090716
  3. BENDAMUSTINE [Suspect]
     Active Substance: BENDAMUSTINE
     Indication: CHRONIC LYMPHOCYTIC LEUKAEMIA
     Dosage: 144 MG, CYCLICAL
     Route: 042
     Dates: start: 20141001, end: 20141001
  4. BENDAMUSTINE [Suspect]
     Active Substance: BENDAMUSTINE
     Route: 042
     Dates: start: 20150205, end: 20150205
  5. BENDAMUSTINE [Suspect]
     Active Substance: BENDAMUSTINE
     Route: 042
     Dates: start: 20141202, end: 20141202
  6. BENDAMUSTINE [Suspect]
     Active Substance: BENDAMUSTINE
     Dosage: 96 MG, CYCLICAL
     Route: 042
     Dates: start: 20140205, end: 20140206
  7. BENDAMUSTINE [Suspect]
     Active Substance: BENDAMUSTINE
     Route: 042
     Dates: start: 20141230, end: 20141230
  8. RITUXIMAB [Suspect]
     Active Substance: RITUXIMAB
     Dosage: 600 MG, CYCLICAL
     Route: 042
     Dates: start: 20141230, end: 20141230
  9. BENDAMUSTINE [Suspect]
     Active Substance: BENDAMUSTINE
     Dosage: 144 MG, CYCLICAL
     Route: 042
     Dates: start: 20141002, end: 20141002
  10. BENDAMUSTINE [Suspect]
     Active Substance: BENDAMUSTINE
     Dosage: 96 MG, CYCLICAL
     Route: 042
     Dates: start: 20141230, end: 20141231
  11. RITUXIMAB [Suspect]
     Active Substance: RITUXIMAB
     Indication: CHRONIC LYMPHOCYTIC LEUKAEMIA
     Dosage: 600 MG, CYCLICAL
     Route: 042
     Dates: start: 20141001, end: 20141001
  12. BISEPTOL [Concomitant]
     Active Substance: SULFAMETHOXAZOLE\TRIMETHOPRIM
     Indication: INFECTION PROPHYLAXIS
     Route: 048
     Dates: start: 20141001
  13. IDELALISIB [Suspect]
     Active Substance: IDELALISIB
     Indication: CHRONIC LYMPHOCYTIC LEUKAEMIA
     Dosage: 150 MG, BID
     Route: 048
     Dates: start: 20141103
  14. BENDAMUSTINE [Suspect]
     Active Substance: BENDAMUSTINE
     Dosage: 96 MG, CYCLICAL
     Route: 042
     Dates: start: 20141103, end: 20141104
  15. BENDAMUSTINE [Suspect]
     Active Substance: BENDAMUSTINE
     Route: 042
     Dates: start: 20150206, end: 20150206
  16. IDELALISIB [Suspect]
     Active Substance: IDELALISIB
     Dosage: 150 MG, BID
     Route: 048
     Dates: start: 20141001, end: 20141005
  17. BENDAMUSTINE [Suspect]
     Active Substance: BENDAMUSTINE
     Route: 042
     Dates: start: 20141203, end: 20141203
  18. RITUXIMAB [Suspect]
     Active Substance: RITUXIMAB
     Dosage: 600 MG, CYCLICAL
     Route: 042
     Dates: start: 20141103, end: 20141103
  19. RITUXIMAB [Suspect]
     Active Substance: RITUXIMAB
     Dosage: 600 MG, CYCLICAL
     Route: 042
     Dates: start: 20141202, end: 20141202
  20. RITUXIMAB [Suspect]
     Active Substance: RITUXIMAB
     Dosage: 600 UNK, UNK
     Route: 042
     Dates: start: 20150205, end: 20150205
  21. CLEMASTIN [Concomitant]
     Active Substance: CLEMASTINE
     Indication: PREMEDICATION
     Route: 040
     Dates: start: 20141230, end: 20141230
  22. BENDAMUSTINE [Suspect]
     Active Substance: BENDAMUSTINE
     Dosage: 96 MG, UNK
     Dates: start: 20141202, end: 20141203
  23. BENDAMUSTINE [Suspect]
     Active Substance: BENDAMUSTINE
     Route: 042
     Dates: start: 20141231, end: 20141231
  24. BENDAMUSTINE [Suspect]
     Active Substance: BENDAMUSTINE
     Route: 042
     Dates: start: 20141103, end: 20141103
  25. ACARD [Concomitant]
     Active Substance: ASPIRIN
     Indication: PROPHYLAXIS
     Route: 048
     Dates: start: 200910
  26. HYDROCORTISONE. [Concomitant]
     Active Substance: HYDROCORTISONE
     Indication: PREMEDICATION
     Route: 040
     Dates: start: 20141230, end: 20141230
  27. ALLOPURINOL. [Concomitant]
     Active Substance: ALLOPURINOL
     Indication: PROPHYLAXIS
     Route: 048
     Dates: start: 20141001
  28. PARACETAMOL [Concomitant]
     Active Substance: ACETAMINOPHEN
     Indication: PREMEDICATION
     Route: 048
     Dates: start: 20141230, end: 20141230
  29. ZOFRAN [Concomitant]
     Active Substance: ONDANSETRON HYDROCHLORIDE
     Route: 040
     Dates: start: 20141230, end: 20141231
  30. HEVIRAN                            /00587301/ [Concomitant]
     Route: 048
     Dates: start: 20141001

REACTIONS (1)
  - Anaemia [Recovered/Resolved]

NARRATIVE: CASE EVENT DATE: 20150113
